FAERS Safety Report 4543156-2 (Version None)
Quarter: 2004Q4

REPORT INFORMATION
  Report Type: 
  Country: None (occurrence: None)
  Receive Date: 20041229
  Receipt Date: 20041217
  Transmission Date: 20050328
  Serious: Yes (Death)
  Sender: FDA-Public Use
  Company Number: 2004227152DE

PATIENT
  Age: 56 Year
  Sex: Male
  Weight: 54 kg

DRUGS (6)
  1. FRAGMIN [Suspect]
     Indication: THROMBOSIS PROPHYLAXIS
     Dosage: 5000 UNITS (5000 UNITS, ONCEDAILY), SUBCUTANEOUS
     Route: 058
     Dates: start: 20040310, end: 20040327
  2. OMEPRAZOLE [Concomitant]
  3. DIPYRONE TAB [Concomitant]
  4. HYOSCINE HBR HYT [Concomitant]
  5. METOCLOPRAMIDE [Concomitant]
  6. OXYCODONE (OXYCODONE) [Concomitant]

REACTIONS (7)
  - CACHEXIA [None]
  - DEEP VEIN THROMBOSIS [None]
  - MECHANICAL ILEUS [None]
  - METASTASES TO PERITONEUM [None]
  - POST PROCEDURAL COMPLICATION [None]
  - PULMONARY EMBOLISM [None]
  - SUDDEN CARDIAC DEATH [None]
